FAERS Safety Report 4640429-X (Version None)
Quarter: 2005Q2

REPORT INFORMATION
  Report Type: 
  Country: None (occurrence: None)
  Receive Date: 20050420
  Receipt Date: 20050413
  Transmission Date: 20051028
  Serious: Yes (Other)
  Sender: FDA-Public Use
  Company Number: PHNU2005DE01638

PATIENT
  Sex: Male

DRUGS (3)
  1. GLEEVEC [Suspect]
     Indication: CHRONIC MYELOID LEUKAEMIA
     Dosage: 400 MG, QD
     Route: 048
  2. GLEEVEC [Suspect]
     Dosage: 300 MG, QD
     Route: 048
  3. GLEEVEC [Suspect]
     Dosage: 400 MG, QD
     Route: 048

REACTIONS (3)
  - ABDOMINAL DISCOMFORT [None]
  - COLITIS [None]
  - GASTROINTESTINAL PERFORATION [None]
